FAERS Safety Report 10641606 (Version 1)
Quarter: 2014Q4

REPORT INFORMATION
  Report Type: Spontaneous
  Country: DE (occurrence: DE)
  Receive Date: 20141209
  Receipt Date: 20141209
  Transmission Date: 20150529
  Serious: Yes (Death)
  Sender: FDA-Public Use
  Company Number: DE-JNJFOC-20141205173

PATIENT
  Age: 6 Decade
  Sex: Female

DRUGS (2)
  1. CAELYX [Suspect]
     Active Substance: DOXORUBICIN HYDROCHLORIDE
     Indication: OVARIAN CANCER
     Route: 042
     Dates: start: 20110408, end: 20110520
  2. YONDELIS [Suspect]
     Active Substance: TRABECTEDIN
     Indication: OVARIAN CANCER
     Route: 042
     Dates: start: 20110408, end: 20110520

REACTIONS (3)
  - Pancytopenia [Fatal]
  - General physical health deterioration [Fatal]
  - Renal failure [Fatal]

NARRATIVE: CASE EVENT DATE: 20110528
